FAERS Safety Report 16726751 (Version 2)
Quarter: 2019Q4

REPORT INFORMATION
  Report Type: Spontaneous
  Country: JP (occurrence: JP)
  Receive Date: 20190821
  Receipt Date: 20191009
  Transmission Date: 20200122
  Serious: Yes (Death, Other)
  Sender: FDA-Public Use
  Company Number: JP-PFIZER INC-2019282341

PATIENT
  Age: 76 Year
  Sex: Male

DRUGS (3)
  1. UNASYN-S 1.5G [Suspect]
     Active Substance: AMPICILLIN SODIUM\SULBACTAM SODIUM
     Indication: PNEUMONIA
     Dosage: 1.5 G, 1X/DAY
     Route: 042
     Dates: start: 20190629, end: 20190701
  2. WARFARIN [Concomitant]
     Active Substance: WARFARIN
     Dosage: UNK
     Route: 048
  3. BAYASPIRIN [Concomitant]
     Active Substance: ASPIRIN
     Dosage: UNK
     Route: 048

REACTIONS (10)
  - Blood triglycerides increased [Unknown]
  - Drug-induced liver injury [Unknown]
  - Aspartate aminotransferase increased [Unknown]
  - Liver function test increased [Unknown]
  - Blood albumin decreased [Unknown]
  - Blood cholinesterase decreased [Unknown]
  - C-reactive protein increased [Unknown]
  - Blood pressure decreased [Unknown]
  - Alanine aminotransferase increased [Unknown]
  - Body temperature increased [Unknown]

NARRATIVE: CASE EVENT DATE: 20190701
